FAERS Safety Report 7501889-X (Version None)
Quarter: 2011Q2

REPORT INFORMATION
  Report Type: 
  Country: None (occurrence: None)
  Receive Date: 20110525
  Receipt Date: 20110513
  Transmission Date: 20111010
  Serious: Yes (Hospitalization, Other)
  Sender: FDA-Public Use
  Company Number: US-JNJFOC-20110300195

PATIENT
  Sex: Female
  Weight: 83.92 kg

DRUGS (3)
  1. STEROIDS NOS [Suspect]
     Indication: BONE MARROW TRANSPLANT REJECTION
     Dosage: HIGH DOSE
     Route: 048
     Dates: start: 20080101
  2. DURAGESIC-100 [Suspect]
     Indication: PAIN
     Route: 062
     Dates: start: 20081101, end: 20100101
  3. DURAGESIC-100 [Suspect]
     Route: 062
     Dates: start: 20100101

REACTIONS (14)
  - OSTEOPOROSIS [None]
  - ABASIA [None]
  - SKIN DISORDER [None]
  - CATARACT [None]
  - OSTEOGENESIS IMPERFECTA [None]
  - BONE MARROW TRANSPLANT REJECTION [None]
  - FALL [None]
  - PELVIC FRACTURE [None]
  - RIB FRACTURE [None]
  - INTERVERTEBRAL DISC COMPRESSION [None]
  - WRONG TECHNIQUE IN DRUG USAGE PROCESS [None]
  - GRAFT VERSUS HOST DISEASE [None]
  - FEELING HOT [None]
  - PRODUCT ADHESION ISSUE [None]
